FAERS Safety Report 7746382-4 (Version None)
Quarter: 2011Q3

REPORT INFORMATION
  Report Type: 
  Country: None (occurrence: None)
  Receive Date: 20110913
  Receipt Date: 20110913
  Transmission Date: 20111222
  Serious: Yes (Other)
  Sender: FDA-Public Use
  Company Number: None

PATIENT
  Age: 26 Year
  Sex: Male
  Weight: 120.65 kg

DRUGS (1)
  1. TRICOR [Suspect]
     Indication: HYPERLIPIDAEMIA
     Dosage: ONE TABLET
     Route: 048
     Dates: start: 20110727, end: 20110817

REACTIONS (5)
  - MYALGIA [None]
  - ASTHENIA [None]
  - MYOSITIS [None]
  - URINE ODOUR ABNORMAL [None]
  - CHROMATURIA [None]
